FAERS Safety Report 13664898 (Version 8)
Quarter: 2021Q1

REPORT INFORMATION
  Report Type: Report from Study
  Country: CA (occurrence: CA)
  Receive Date: 20170619
  Receipt Date: 20210119
  Transmission Date: 20210419
  Serious: Yes (Death, Other)
  Sender: FDA-Public Use
  Company Number: PHHY2016CA064669

PATIENT
  Age: 57 Year
  Sex: Female

DRUGS (15)
  1. SANDOSTATIN LAR DEPOT [Suspect]
     Active Substance: OCTREOTIDE ACETATE
  2. WARFARIN [Concomitant]
     Active Substance: WARFARIN
     Indication: PRODUCT USED FOR UNKNOWN INDICATION
     Dosage: 7 MG, QD
     Route: 065
  3. WARFARIN [Concomitant]
     Active Substance: WARFARIN
     Dosage: UNK
     Route: 065
     Dates: start: 20170611
  4. WARFARIN [Concomitant]
     Active Substance: WARFARIN
     Dosage: 7 MG, QD
     Route: 065
  5. HEPARIN [Concomitant]
     Active Substance: HEPARIN SODIUM
     Indication: PRODUCT USED FOR UNKNOWN INDICATION
     Dosage: UNK
     Route: 065
     Dates: start: 20190412
  6. DILAUDID [Suspect]
     Active Substance: HYDROMORPHONE HYDROCHLORIDE
     Indication: BONE PAIN
     Dosage: UNK
     Route: 030
  7. FRAGMIN [Concomitant]
     Active Substance: DALTEPARIN SODIUM
     Indication: PRODUCT USED FOR UNKNOWN INDICATION
     Dosage: 1800 U, UNK
     Route: 065
     Dates: start: 2017, end: 2017
  8. DILAUDID [Suspect]
     Active Substance: HYDROMORPHONE HYDROCHLORIDE
     Dosage: 6 MG, PRN
     Route: 065
  9. DILAUDID [Suspect]
     Active Substance: HYDROMORPHONE HYDROCHLORIDE
     Dosage: 2 MG, TID
     Route: 065
  10. WARFARIN [Concomitant]
     Active Substance: WARFARIN
     Dosage: UNK, PRN
     Route: 065
  11. ROSUVASTATIN. [Concomitant]
     Active Substance: ROSUVASTATIN
     Indication: PRODUCT USED FOR UNKNOWN INDICATION
     Dosage: UNK
     Route: 065
     Dates: start: 2019
  12. SANDOSTATIN LAR DEPOT [Suspect]
     Active Substance: OCTREOTIDE ACETATE
     Indication: CARCINOID TUMOUR
     Dosage: 30 MG, Q4W (EVERY 4 WEEKS)
     Route: 030
     Dates: start: 20160404, end: 20160606
  13. SANDOSTATIN LAR DEPOT [Suspect]
     Active Substance: OCTREOTIDE ACETATE
     Dosage: 30 MG, Q4W (EVERY 4 WEEKS)
     Route: 030
     Dates: start: 20160704
  14. WARFARIN [Concomitant]
     Active Substance: WARFARIN
     Dosage: 14 MG, UNK
     Route: 065
  15. COUMADIN [Concomitant]
     Active Substance: WARFARIN SODIUM
     Indication: PRODUCT USED FOR UNKNOWN INDICATION
     Dosage: UNK
     Route: 065

REACTIONS (45)
  - Discomfort [Unknown]
  - Cold sweat [Unknown]
  - Hot flush [Unknown]
  - Colon cancer [Unknown]
  - Musculoskeletal discomfort [Unknown]
  - Pain [Recovering/Resolving]
  - Coccydynia [Unknown]
  - Hepatic function abnormal [Unknown]
  - Arthralgia [Unknown]
  - Back pain [Unknown]
  - Abdominal distension [Unknown]
  - Metastases to pancreas [Unknown]
  - Bone pain [Recovering/Resolving]
  - Flushing [Unknown]
  - Insomnia [Unknown]
  - Diarrhoea [Not Recovered/Not Resolved]
  - Metastases to lymph nodes [Unknown]
  - Metastases to liver [Unknown]
  - Decreased appetite [Unknown]
  - Abdominal mass [Unknown]
  - Malaise [Not Recovered/Not Resolved]
  - Weight decreased [Not Recovered/Not Resolved]
  - Nasopharyngitis [Recovering/Resolving]
  - Hypercholesterolaemia [Unknown]
  - Hypertension [Unknown]
  - Sinusitis [Recovering/Resolving]
  - Constipation [Unknown]
  - Metastases to bone [Unknown]
  - Metastases to pelvis [Unknown]
  - Groin pain [Recovered/Resolved]
  - International normalised ratio increased [Unknown]
  - Dizziness [Recovered/Resolved]
  - Blood pressure systolic increased [Unknown]
  - Death [Fatal]
  - Abdominal hernia [Unknown]
  - Vertigo [Unknown]
  - Pain in extremity [Unknown]
  - Hyperhidrosis [Unknown]
  - Stress [Unknown]
  - Musculoskeletal stiffness [Not Recovered/Not Resolved]
  - Fatigue [Not Recovered/Not Resolved]
  - Nausea [Unknown]
  - Feeling abnormal [Unknown]
  - Body temperature increased [Unknown]
  - Rash [Recovering/Resolving]

NARRATIVE: CASE EVENT DATE: 2016
